FAERS Safety Report 23801332 (Version 3)
Quarter: 2024Q3

REPORT INFORMATION
  Report Type: Spontaneous
  Country: US (occurrence: US)
  Receive Date: 20240430
  Receipt Date: 20240826
  Transmission Date: 20241017
  Serious: No
  Sender: SANOFI AVENTIS
  Company Number: US-SA-SAC20240424001130

PATIENT
  Age: 61 Year
  Sex: Female

DRUGS (2)
  1. DUPIXENT [Suspect]
     Active Substance: DUPILUMAB
     Indication: Neurodermatitis
     Dosage: 600MG, 1X
     Route: 058
  2. DUPIXENT [Suspect]
     Active Substance: DUPILUMAB
     Dosage: 300MG, QOW
     Route: 058

REACTIONS (11)
  - Impaired quality of life [Unknown]
  - Fatigue [Unknown]
  - Epistaxis [Unknown]
  - Depression [Unknown]
  - Blood disorder [Unknown]
  - Skin ulcer [Unknown]
  - Muscle spasms [Unknown]
  - Hypomenorrhoea [Unknown]
  - Pruritus [Unknown]
  - Therapeutic response decreased [Unknown]
  - Rash [Recovered/Resolved]

NARRATIVE: CASE EVENT DATE: 20240708
